FAERS Safety Report 5615029-5 (Version None)
Quarter: 2008Q1

REPORT INFORMATION
  Report Type: 
  Country: None (occurrence: None)
  Receive Date: 20080201
  Receipt Date: 20080122
  Transmission Date: 20080703
  Serious: Yes (Hospitalization)
  Sender: FDA-Public Use
  Company Number: ENC200800012

PATIENT
  Age: 56 Year
  Sex: Female

DRUGS (11)
  1. ARGATROBAN [Suspect]
     Dosage: 1.5 MCG/KG/MIN, INTRAVENOUS
     Route: 042
     Dates: start: 20080121, end: 20080121
  2. LOVENOX /00889602/ (HEPARIN-FRACTION, SODIUM SALT) [Concomitant]
  3. PREDNISONE TAB [Concomitant]
  4. ATROVENT [Concomitant]
  5. PLAVIX [Concomitant]
  6. POTASSIUM (POTASSIUM) [Concomitant]
  7. TOPAMAX [Concomitant]
  8. IMURAN [Concomitant]
  9. ACCUNEB (SALBUTAMOL SULFATE) [Concomitant]
  10. LASIX [Concomitant]
  11. XANAX [Concomitant]

REACTIONS (6)
  - ALANINE AMINOTRANSFERASE INCREASED [None]
  - ASPARTATE AMINOTRANSFERASE INCREASED [None]
  - DYSPNOEA [None]
  - GRANULOCYTOSIS [None]
  - HEPATIC ENZYME INCREASED [None]
  - IMMUNOSUPPRESSION [None]
